FAERS Safety Report 9379719 (Version 2)
Quarter: 2013Q3

REPORT INFORMATION
  Report Type: Spontaneous
  Country: JP (occurrence: JP)
  Receive Date: 20130702
  Receipt Date: 20130711
  Transmission Date: 20140515
  Serious: Yes (Hospitalization)
  Sender: FDA-Public Use
  Company Number: JP-PFIZER INC-2013189207

PATIENT
  Age: 41 Year
  Sex: Female

DRUGS (3)
  1. FARMORUBICIN [Suspect]
     Indication: BREAST CANCER METASTATIC
     Dosage: UNK
     Route: 042
     Dates: start: 20130621
  2. FLUOROURACIL [Concomitant]
     Indication: BREAST CANCER METASTATIC
  3. CYCLOPHOSPHAMIDE [Concomitant]
     Indication: BREAST CANCER METASTATIC

REACTIONS (3)
  - Injection site extravasation [Unknown]
  - Blister [Not Recovered/Not Resolved]
  - Skin necrosis [Unknown]
